FAERS Safety Report 12254391 (Version 1)
Quarter: 2016Q2

REPORT INFORMATION
  Report Type: Spontaneous
  Country: JP (occurrence: JP)
  Receive Date: 20160411
  Receipt Date: 20160411
  Transmission Date: 20160815
  Serious: Yes (Other)
  Sender: FDA-Public Use
  Company Number: JP-EMD SERONO-8076303

PATIENT
  Age: 41 Year
  Sex: Female

DRUGS (2)
  1. HMG                                /01277601/ [Concomitant]
     Indication: OVULATION INDUCTION
     Route: 065
  2. SEROPHENE [Suspect]
     Active Substance: CLOMIPHENE CITRATE
     Indication: OVULATION INDUCTION
     Route: 048

REACTIONS (1)
  - Cyst [Unknown]
